FAERS Safety Report 13464041 (Version 1)
Quarter: 2017Q2

REPORT INFORMATION
  Report Type: Spontaneous
  Country: US (occurrence: US)
  Receive Date: 20170420
  Receipt Date: 20170420
  Transmission Date: 20170830
  Serious: Yes (Other)
  Sender: FDA-Public Use
  Company Number: US-ROCHE-720031

PATIENT
  Sex: Female

DRUGS (1)
  1. ISOTRETINOIN [Suspect]
     Active Substance: ISOTRETINOIN
     Indication: GANGLIONEUROMA
     Dosage: PERMANENTLY DISCONTINUED AFTER 8 MONTHS OF TREATMENT.
     Route: 065

REACTIONS (1)
  - Neutropenia [Unknown]
